FAERS Safety Report 25184054 (Version 1)
Quarter: 2025Q2

REPORT INFORMATION
  Report Type: Spontaneous
  Country: US (occurrence: US)
  Receive Date: 20250410
  Receipt Date: 20250410
  Transmission Date: 20250716
  Serious: No
  Sender: SANOFI AVENTIS
  Company Number: US-SA-2025SA102325

PATIENT
  Age: 67 Year
  Sex: Female

DRUGS (2)
  1. DUPIXENT [Suspect]
     Active Substance: DUPILUMAB
     Indication: Dermatitis atopic
     Dosage: 300MG
     Route: 058
     Dates: start: 202502
  2. DUPIXENT [Suspect]
     Active Substance: DUPILUMAB
     Route: 058
     Dates: start: 20250203, end: 20250203

REACTIONS (3)
  - Pollakiuria [Unknown]
  - Dry mouth [Unknown]
  - Weight increased [Unknown]

NARRATIVE: CASE EVENT DATE: 20250101
